FAERS Safety Report 24957611 (Version 1)
Quarter: 2025Q1

REPORT INFORMATION
  Report Type: Report from Study
  Country: DE (occurrence: DE)
  Receive Date: 20250212
  Receipt Date: 20250212
  Transmission Date: 20250409
  Serious: Yes (Other)
  Sender: BIOGEN
  Company Number: DE-ROCHE-3152525

PATIENT
  Age: 69 Year
  Sex: Female
  Weight: 72 kg

DRUGS (9)
  1. TECFIDERA [Suspect]
     Active Substance: DIMETHYL FUMARATE
     Indication: Relapsing multiple sclerosis
     Route: 050
     Dates: start: 20200129
  2. GABAPENTIN [Concomitant]
     Active Substance: GABAPENTIN
     Indication: Product used for unknown indication
     Route: 050
  3. BISOPROLOL [Concomitant]
     Active Substance: BISOPROLOL
     Indication: Product used for unknown indication
     Route: 050
     Dates: start: 2017
  4. FSME [Concomitant]
     Indication: Product used for unknown indication
     Route: 050
     Dates: start: 20220330, end: 20220330
  5. CELEBREX [Concomitant]
     Active Substance: CELECOXIB
     Indication: Osteoporosis
     Route: 050
  6. RALOXIFENE [Concomitant]
     Active Substance: RALOXIFENE
     Indication: Osteoporosis
     Route: 050
  7. SHINGRIX [Concomitant]
     Active Substance: RECOMBINANT VARICELLA ZOSTER VIRUS (VZV) GLYCOPROTEIN E
     Indication: Prophylaxis
     Route: 050
     Dates: start: 20220301, end: 20220301
  8. CHOLECALCIFEROL [Concomitant]
     Active Substance: CHOLECALCIFEROL
     Indication: Hypovitaminosis
     Route: 050
     Dates: start: 20200127
  9. CARBAMAZEPINE [Concomitant]
     Active Substance: CARBAMAZEPINE
     Indication: Trigeminal neuralgia
     Route: 050
     Dates: start: 2019

REACTIONS (3)
  - Skin cancer [Recovered/Resolved]
  - Basal cell carcinoma [Recovered/Resolved]
  - Skin cancer [Recovered/Resolved]

NARRATIVE: CASE EVENT DATE: 20220112
